FAERS Safety Report 9379150 (Version 1)
Quarter: 2013Q3

REPORT INFORMATION
  Report Type: Spontaneous
  Country: GB (occurrence: GB)
  Receive Date: 20130702
  Receipt Date: 20130702
  Transmission Date: 20140515
  Serious: No
  Sender: FDA-Public Use
  Company Number: GB-JNJFOC-20130611277

PATIENT
  Sex: Male

DRUGS (2)
  1. DURAGESIC [Suspect]
     Indication: PRODUCT USED FOR UNKNOWN INDICATION
     Route: 062
  2. DURAGESIC [Suspect]
     Indication: PRODUCT USED FOR UNKNOWN INDICATION
     Route: 062

REACTIONS (4)
  - Malaise [Not Recovered/Not Resolved]
  - Frustration [Not Recovered/Not Resolved]
  - Product quality issue [Unknown]
  - Inappropriate schedule of drug administration [Unknown]
